FAERS Safety Report 21915440 (Version 1)
Quarter: 2023Q1

REPORT INFORMATION
  Report Type: Spontaneous
  Country: CA (occurrence: CA)
  Receive Date: 20230126
  Receipt Date: 20230126
  Transmission Date: 20230417
  Serious: Yes (Hospitalization)
  Sender: FDA-Public Use
  Company Number: CA-BAYER-2023A005146

PATIENT
  Age: 74 Year
  Sex: Female
  Weight: 113 kg

DRUGS (21)
  1. CIPRO [Suspect]
     Active Substance: CIPROFLOXACIN HYDROCHLORIDE
     Indication: Pancreatitis
     Dosage: 1 EVERY 1 DAYS
     Route: 048
  2. CIPRO [Suspect]
     Active Substance: CIPROFLOXACIN HYDROCHLORIDE
     Indication: Cholangitis
  3. FLAGYL [Suspect]
     Active Substance: METRONIDAZOLE\METRONIDAZOLE HYDROCHLORIDE
     Dosage: 1 EVERY 8 HOURS
  4. PIPERACILLIN SODIUM\TAZOBACTAM SODIUM [Suspect]
     Active Substance: PIPERACILLIN SODIUM\TAZOBACTAM SODIUM
     Indication: Pancreatitis
     Dosage: 1 EVERY 6 HOURS
     Route: 042
  5. PIPERACILLIN SODIUM\TAZOBACTAM SODIUM [Suspect]
     Active Substance: PIPERACILLIN SODIUM\TAZOBACTAM SODIUM
     Indication: Cholangitis
  6. MORPHINE [Concomitant]
     Active Substance: MORPHINE
  7. POLYETHYLENE GLYCOLS [Concomitant]
     Active Substance: POLYETHYLENE GLYCOLS
  8. ONDANSETRON [Concomitant]
     Active Substance: ONDANSETRON
  9. DIMENHYDRINATE [Concomitant]
     Active Substance: DIMENHYDRINATE
  10. HYDROMORPHONE [Concomitant]
     Active Substance: HYDROMORPHONE
  11. ZINC OXIDE [Concomitant]
     Active Substance: ZINC OXIDE
  12. ELIQUIS [Concomitant]
     Active Substance: APIXABAN
  13. BISOPROLOL [Concomitant]
     Active Substance: BISOPROLOL
  14. FERROUS SULPHATE CO [Concomitant]
  15. PREGABALIN [Concomitant]
     Active Substance: PREGABALIN
  16. PANTOPRAZOLE [Concomitant]
     Active Substance: PANTOPRAZOLE
  17. INSULIN GLARGINE [Concomitant]
     Active Substance: INSULIN GLARGINE
  18. CLOTRIMAZOLE [Concomitant]
     Active Substance: CLOTRIMAZOLE
  19. FUROSEMIDE [Concomitant]
     Active Substance: FUROSEMIDE
  20. HEPARIN SODIUM [Concomitant]
     Active Substance: HEPARIN SODIUM
  21. ACETAMINOPHEN [Concomitant]
     Active Substance: ACETAMINOPHEN

REACTIONS (3)
  - Clostridium difficile colitis [Recovered/Resolved]
  - Acute kidney injury [Recovered/Resolved]
  - Electrolyte imbalance [Recovered/Resolved]
